FAERS Safety Report 25186883 (Version 1)
Quarter: 2025Q2

REPORT INFORMATION
  Report Type: Spontaneous
  Country: BG (occurrence: BG)
  Receive Date: 20250411
  Receipt Date: 20250411
  Transmission Date: 20250716
  Serious: Yes (Other)
  Sender: GLAXOSMITHKLINE
  Company Number: BG-GSK-BG2025GSK041388

PATIENT

DRUGS (4)
  1. PROPAFENONE HYDROCHLORIDE [Suspect]
     Active Substance: PROPAFENONE HYDROCHLORIDE
     Indication: Atrial fibrillation
     Dosage: 300 MG, TID, HALF A TABLET
     Dates: start: 2023
  2. BISOPROLOL FUMARATE [Suspect]
     Active Substance: BISOPROLOL FUMARATE
     Indication: Hypertension
     Dosage: 2.5 MG, QD, ONCE IN MORNING
     Dates: start: 2023
  3. APIXABAN [Concomitant]
     Active Substance: APIXABAN
     Indication: Atrial fibrillation
     Dosage: 2.5 MG, BID, ONCE IN MORNING AND ONCE IN EVENING
     Dates: start: 2023
  4. SPIRONOLACTONE [Concomitant]
     Active Substance: SPIRONOLACTONE
     Indication: Hypertension
     Dosage: 25 MG, QD, IN MORNING
     Dates: start: 2023

REACTIONS (7)
  - Leukoplakia oral [Unknown]
  - Squamous cell carcinoma [Unknown]
  - Genotoxicity [Unknown]
  - Oral lichen planus [Unknown]
  - Hyperkeratosis [Unknown]
  - Acanthosis [Unknown]
  - Parakeratosis [Unknown]
